FAERS Safety Report 8471080-1 (Version None)
Quarter: 2012Q2

REPORT INFORMATION
  Report Type: 
  Country: None (occurrence: None)
  Receive Date: 20120627
  Receipt Date: 20120327
  Transmission Date: 20120825
  Serious: Yes (Other)
  Sender: FDA-Public Use
  Company Number: US-GLAXOSMITHKLINE-A0971359A

PATIENT
  Sex: Male

DRUGS (3)
  1. LAMICTAL [Suspect]
     Dosage: 50MG UNKNOWN
     Route: 048
  2. ASPIRIN [Concomitant]
  3. LAMICTAL [Suspect]
     Indication: CONVULSION
     Route: 048

REACTIONS (3)
  - CONVULSION [None]
  - DIZZINESS [None]
  - DRUG LEVEL FLUCTUATING [None]
